FAERS Safety Report 9669141 (Version 2)
Quarter: 2013Q4

REPORT INFORMATION
  Report Type: Spontaneous
  Country: US (occurrence: US)
  Receive Date: 20131105
  Receipt Date: 20131202
  Transmission Date: 20140711
  Serious: Yes (Death)
  Sender: FDA-Public Use
  Company Number: US-AMGEN-USASP2013076940

PATIENT
  Age: 88 Year
  Sex: Female
  Weight: 45.35 kg

DRUGS (10)
  1. PROLIA [Suspect]
     Indication: OSTEOPOROSIS POSTMENOPAUSAL
     Dosage: 60 MG, Q6MO
     Route: 058
     Dates: start: 20120501, end: 20130522
  2. PROLIA [Suspect]
     Route: 058
  3. PROLIA [Suspect]
     Route: 058
  4. CENTRUM SILVER                     /02363801/ [Concomitant]
     Dosage: UNK UNK, QD
     Route: 048
  5. CALCIUM [Concomitant]
     Dosage: 600 MG, QD
     Route: 048
  6. METAMUCIL                          /00029101/ [Concomitant]
     Dosage: 0.52 UNK, QD
     Route: 048
  7. VITAMIN C                          /00008001/ [Concomitant]
     Dosage: 100 MG, QD
  8. LOSARTAN [Concomitant]
     Dosage: 50 MG, QD
     Route: 048
  9. TOPROL [Concomitant]
     Dosage: 50 MG, BID
     Route: 048
  10. OMEPRAZOLE [Concomitant]
     Dosage: 20 MG, BID
     Route: 048

REACTIONS (5)
  - Death [Fatal]
  - Muscular weakness [Unknown]
  - Blood calcium increased [Unknown]
  - Osteoarthritis [Unknown]
  - Back pain [Unknown]
